FAERS Safety Report 5384128-8 (Version None)
Quarter: 2007Q3

REPORT INFORMATION
  Report Type: 
  Country: None (occurrence: None)
  Receive Date: 20070711
  Receipt Date: 20070702
  Transmission Date: 20080115
  Serious: Yes (Hospitalization, Other)
  Sender: FDA-Public Use
  Company Number: US-ASTRAZENECA-2006UW27627

PATIENT
  Age: 33 Year
  Sex: Male
  Weight: 109.1 kg

DRUGS (14)
  1. SEROQUEL [Suspect]
     Indication: BIPOLAR DISORDER
     Route: 048
     Dates: start: 20010101, end: 20060101
  2. SEROQUEL [Suspect]
     Indication: ANXIETY
     Route: 048
     Dates: start: 20010101, end: 20060101
  3. SEROQUEL [Suspect]
     Indication: HALLUCINATION
     Route: 048
     Dates: start: 20010101, end: 20060101
  4. SEROQUEL [Suspect]
     Dosage: 200MG TO 400MG
     Dates: start: 19900101, end: 20070101
  5. SEROQUEL [Suspect]
     Dosage: 200MG TO 400MG
     Dates: start: 19900101, end: 20070101
  6. SEROQUEL [Suspect]
     Dosage: 200MG TO 400MG
     Dates: start: 19900101, end: 20070101
  7. ZYPREXA [Concomitant]
     Route: 048
     Dates: start: 20040513, end: 20040610
  8. ZYPREXA [Concomitant]
     Dosage: 10MG
     Route: 048
     Dates: start: 20040610, end: 20040615
  9. ZYPREXA [Concomitant]
     Dosage: 5MG
     Route: 048
     Dates: start: 20040615
  10. LORAZEPAM [Concomitant]
     Dosage: 1MG
     Route: 048
     Dates: start: 20050201
  11. TRAZODONE HCL [Concomitant]
     Route: 048
     Dates: start: 20050223
  12. EFFEXOR [Concomitant]
     Route: 048
     Dates: start: 20050223
  13. HALDOL [Concomitant]
  14. RISPERDAL [Concomitant]
     Dates: start: 19900101

REACTIONS (3)
  - HEPATITIS C [None]
  - PANCREATITIS [None]
  - TYPE 2 DIABETES MELLITUS [None]
